FAERS Safety Report 10169228 (Version 2)
Quarter: 2014Q2

REPORT INFORMATION
  Report Type: Spontaneous
  Country: US (occurrence: US)
  Receive Date: 20140513
  Receipt Date: 20140513
  Transmission Date: 20141212
  Serious: No
  Sender: FDA-Public Use
  Company Number: US-MYLANLABS-2013S1026556

PATIENT
  Age: 64 Year
  Sex: Male

DRUGS (9)
  1. VERAPAMIL HYDROCHLORIDE EXTENDED-RELEASE CAPSULES [Suspect]
     Indication: ARRHYTHMIA
     Route: 048
     Dates: start: 201308, end: 20131123
  2. VERAPAMIL HYDROCHLORIDE EXTENDED-RELEASE CAPSULES [Suspect]
     Indication: BLOOD PRESSURE INCREASED
     Route: 048
     Dates: start: 201308, end: 20131123
  3. VERAPAMIL HYDROCHLORIDE EXTENDED-RELEASE CAPSULES [Suspect]
     Indication: ARRHYTHMIA
     Route: 048
     Dates: start: 20131124
  4. VERAPAMIL HYDROCHLORIDE EXTENDED-RELEASE CAPSULES [Suspect]
     Indication: BLOOD PRESSURE INCREASED
     Route: 048
     Dates: start: 20131124
  5. SINGULAIR [Concomitant]
     Indication: MULTIPLE ALLERGIES
     Dosage: TAKING FOR ALLERGIES AND ASTHMA
  6. ACIPHEX [Concomitant]
     Indication: DYSPEPSIA
     Route: 048
  7. VERAMYST [Concomitant]
     Indication: MULTIPLE ALLERGIES
  8. VALSARTAN AND HYDROCHLOROTHIAZIDE TABLETS [Concomitant]
     Indication: BLOOD PRESSURE INCREASED
     Dosage: 320MG/5MG
     Route: 048
  9. CENTRUM [Concomitant]

REACTIONS (6)
  - Drug ineffective [Recovered/Resolved]
  - Arrhythmia [Recovered/Resolved]
  - Blood pressure increased [Recovered/Resolved]
  - Dizziness [Recovered/Resolved]
  - Constipation [Recovering/Resolving]
  - Wrong technique in drug usage process [Not Recovered/Not Resolved]
